FAERS Safety Report 16672054 (Version 1)
Quarter: 2019Q3

REPORT INFORMATION
  Report Type: Spontaneous
  Country: CA (occurrence: CA)
  Receive Date: 20190806
  Receipt Date: 20190806
  Transmission Date: 20191004
  Serious: Yes (Other)
  Sender: FDA-Public Use
  Company Number: CA-JNJFOC-20190636028

PATIENT
  Age: 10 Year
  Sex: Male

DRUGS (10)
  1. CYTARABINE. [Suspect]
     Active Substance: CYTARABINE
     Dosage: 50 MG/M2/DOSE S.C./I.V. PUSH Q12H X10 DOSES ON DAYS 1, 2, 3, 4, 5; CYCLICAL
     Route: 037
  2. ETOPOSIDE. [Suspect]
     Active Substance: ETOPOSIDE
     Indication: BURKITT^S LYMPHOMA STAGE III
     Dosage: ETOPOSIDE 150 MG/M2/DOSE I.V. OVER 2 HOURS, DAILY X 3 DAYS ON DAYS 1, 2, 3; CYCLICAL
     Route: 042
  3. DOXORUBICIN HYDROCHLORIDE. [Suspect]
     Active Substance: DOXORUBICIN HYDROCHLORIDE
     Indication: BURKITT^S LYMPHOMA STAGE III
     Dosage: DOXORUBICIN 60 MG/M2/DOSE I.V. OVER 15 MINUTES ON DAY 2; AFTER FIRST DOSE OF CYCLOPHOSPHAMIDE; CY...
     Route: 065
  4. CYTARABINE. [Suspect]
     Active Substance: CYTARABINE
     Indication: BURKITT^S LYMPHOMA STAGE III
     Dosage: CYTARABINE IT 12-30 MG X 1 DOSE ON DAY 2; CYCLICAL
     Route: 039
  5. METHOTREXATE. [Suspect]
     Active Substance: METHOTREXATE
     Dosage: HD METHOTREXATE 8000 MG/M2/DOSE I.V. OVER 4 HOURS ON DAY 1; CYCLICAL
     Route: 042
  6. HYDROCORTISONE. [Suspect]
     Active Substance: HYDROCORTISONE
     Indication: BURKITT^S LYMPHOMA STAGE III
     Dosage: HYDROCORTISONE IT 6- 15 MG X 1 DOSE ON DAY 2; CYCLICAL
     Route: 039
  7. PREDNISONE. [Suspect]
     Active Substance: PREDNISONE
     Indication: BURKITT^S LYMPHOMA STAGE III
     Dosage: PREDNISONE 30 MG/M2/DOSE P.O. B.I.D. X10 DOSES ON DAYS 1, 2, 3, 4, 5 AND TAPER OVER 3 DAYS; CYCLICAL
     Route: 048
  8. CYCLOPHOSPHAMIDE. [Suspect]
     Active Substance: CYCLOPHOSPHAMIDE
     Indication: BURKITT^S LYMPHOMA STAGE III
     Dosage: CYCLOPHOSPHAMIDE 500 MG/M2/DOSE I.V. OVER 60MINUTES, ONCE DAILY X 2 DAYS ON DAYS 2 AND 3; CYCLICAL
     Route: 042
  9. METHOTREXATE. [Suspect]
     Active Substance: METHOTREXATE
     Indication: BURKITT^S LYMPHOMA STAGE III
     Dosage: ; CYCLICAL
     Route: 037
  10. VINCRISTINE [Suspect]
     Active Substance: VINCRISTINE
     Indication: BURKITT^S LYMPHOMA STAGE III
     Dosage: VINCRISTINE 2 MG/M2/DOSE (MAX 2MG) I.V. PUSH ON DAY 1; CYCLICAL
     Route: 042

REACTIONS (5)
  - Off label use [Unknown]
  - Candida infection [Unknown]
  - Skin disorder [Unknown]
  - Mucosal inflammation [Unknown]
  - Product use in unapproved indication [Unknown]
